FAERS Safety Report 7820578-5 (Version None)
Quarter: 2011Q4

REPORT INFORMATION
  Report Type: 
  Country: None (occurrence: None)
  Receive Date: 20111018
  Receipt Date: 20111004
  Transmission Date: 20120403
  Serious: Yes (Disabling)
  Sender: FDA-Public Use
  Company Number: CA-BAYER-2011-099744

PATIENT

DRUGS (1)
  1. BETASERON [Suspect]
     Dosage: UNK
     Dates: start: 19970101, end: 20100101

REACTIONS (2)
  - RASH [None]
  - ABASIA [None]
